FAERS Safety Report 12566289 (Version 1)
Quarter: 2016Q3

REPORT INFORMATION
  Report Type: Spontaneous
  Country: US (occurrence: US)
  Receive Date: 20160718
  Receipt Date: 20160718
  Transmission Date: 20161109
  Serious: No
  Sender: FDA-Public Use
  Company Number: US-SHIRE-US201607972

PATIENT
  Age: 18 Year
  Sex: Female

DRUGS (1)
  1. VPRIV [Suspect]
     Active Substance: VELAGLUCERASE ALFA
     Indication: METABOLIC DISORDER
     Dosage: 4800 IU, 1X/2WKS
     Route: 041
     Dates: start: 201510

REACTIONS (3)
  - Product use issue [Not Recovered/Not Resolved]
  - Treatment noncompliance [Unknown]
  - No adverse event [Unknown]

NARRATIVE: CASE EVENT DATE: 201510
